FAERS Safety Report 7417147-8 (Version None)
Quarter: 2011Q2

REPORT INFORMATION
  Report Type: 
  Country: None (occurrence: None)
  Receive Date: 20110415
  Receipt Date: 20101116
  Transmission Date: 20111010
  Serious: Yes (Other)
  Sender: FDA-Public Use
  Company Number: US-BAYER-201022906NA

PATIENT
  Age: 32 Year
  Sex: Female
  Weight: 88.435 kg

DRUGS (15)
  1. OCELLA [Suspect]
     Indication: PREMENSTRUAL SYNDROME
  2. TOPAMAX [Concomitant]
     Route: 048
  3. CYMBALTA [Concomitant]
     Route: 048
  4. YASMIN [Suspect]
     Indication: ACNE
     Dosage: UNK UNK, QD
     Route: 048
     Dates: start: 20010101, end: 20081001
  5. OCELLA [Suspect]
     Indication: ACNE
     Dosage: UNK UNK, QD
     Route: 048
     Dates: start: 20081001, end: 20100301
  6. CLONIDINE [Concomitant]
     Dosage: 0.1 MG, UNK
     Route: 048
  7. SPIRONOLACTONE [Concomitant]
     Dosage: UNK
     Dates: start: 19990101, end: 20070701
  8. ATENOLOL [Concomitant]
     Dosage: 100 MG, UNK
  9. CLONAZEPAM [Concomitant]
     Dosage: 1 MG, UNK
     Route: 048
  10. FLUOXETINE [Concomitant]
     Dosage: 20 MG, UNK
     Route: 048
  11. NAPROXEN [Concomitant]
  12. YASMIN [Suspect]
     Indication: PREMENSTRUAL SYNDROME
  13. IBUPROFEN [Concomitant]
  14. WELLBUTRIN [Concomitant]
     Route: 048
  15. VIOXX [Concomitant]
     Dosage: 25 MG, UNK
     Route: 048

REACTIONS (2)
  - GALLBLADDER INJURY [None]
  - CHOLELITHIASIS [None]
